FAERS Safety Report 6148522-X (Version None)
Quarter: 2009Q2

REPORT INFORMATION
  Report Type: 
  Country: None (occurrence: None)
  Receive Date: 20090408
  Receipt Date: 20090405
  Transmission Date: 20091009
  Serious: Yes (Hospitalization)
  Sender: FDA-Public Use
  Company Number: EG-EISAI MEDICAL RESEARCH-E2020-04410-SPO-EG

PATIENT
  Age: 80 Year
  Sex: Female

DRUGS (1)
  1. ARICEPT [Suspect]
     Indication: DEMENTIA ALZHEIMER'S TYPE
     Route: 048
     Dates: start: 20090101, end: 20090101

REACTIONS (4)
  - FALL [None]
  - FEMORAL NECK FRACTURE [None]
  - FEMUR FRACTURE [None]
  - INTESTINAL OBSTRUCTION [None]
